FAERS Safety Report 4853010-4 (Version None)
Quarter: 2005Q4

REPORT INFORMATION
  Report Type: 
  Country: None (occurrence: None)
  Receive Date: 20051212
  Receipt Date: 20051121
  Transmission Date: 20060501
  Serious: Yes (Hospitalization, Other)
  Sender: FDA-Public Use
  Company Number: USA0508105648

PATIENT
  Age: 47 Year
  Sex: Male
  Weight: 89.5 kg

DRUGS (3)
  1. CYMBALTA [Suspect]
     Indication: DEPRESSION
     Dosage: 30 MG, DAILY (1/D),
     Dates: start: 20050812
  2. ZYPREXA [Suspect]
     Indication: BIPOLAR DISORDER
     Dosage: 5 MG, DAILY (1/D), ORAL
     Route: 048
  3. ANAPROX DS [Concomitant]

REACTIONS (3)
  - CARDIAC ENZYMES INCREASED [None]
  - CHEST PAIN [None]
  - GRAND MAL CONVULSION [None]
